FAERS Safety Report 7413560-3 (Version None)
Quarter: 2011Q2

REPORT INFORMATION
  Report Type: 
  Country: None (occurrence: None)
  Receive Date: 20110413
  Receipt Date: 20110329
  Transmission Date: 20111010
  Serious: No
  Sender: FDA-Public Use
  Company Number: US-B.I. PHARMACEUTICALS,INC./RIDGEFIELD-2011-BP-09695BP

PATIENT
  Sex: Female

DRUGS (13)
  1. PREDNISONE TAB [Suspect]
  2. LASIX [Concomitant]
     Indication: OEDEMA PERIPHERAL
  3. VIT C. [Concomitant]
     Indication: PROPHYLAXIS
  4. COMBIVENT [Concomitant]
     Indication: DYSPNOEA
     Dates: start: 20040101
  5. POTASSIUM [Concomitant]
     Indication: DIURETIC THERAPY
  6. M.V.I. [Concomitant]
     Indication: PROPHYLAXIS
  7. OXYCODONE [Concomitant]
     Indication: PAIN
  8. METHADONE [Concomitant]
     Indication: PAIN
  9. SYNTHROID [Concomitant]
     Indication: HYPOTHYROIDISM
  10. SPIRIVA [Suspect]
     Indication: DYSPNOEA
     Dosage: 18 MCG
     Route: 055
     Dates: start: 20110308
  11. NEBS [Suspect]
  12. MG [Concomitant]
     Indication: PROPHYLAXIS
  13. GUAIFENESIN [Concomitant]
     Indication: INCREASED UPPER AIRWAY SECRETION

REACTIONS (7)
  - HYPOACUSIS [None]
  - WHEEZING [None]
  - GINGIVAL DISORDER [None]
  - VISUAL ACUITY REDUCED [None]
  - MEMORY IMPAIRMENT [None]
  - EAR PAIN [None]
  - LACK OF SATIETY [None]
